FAERS Safety Report 7989823-X (Version None)
Quarter: 2011Q4

REPORT INFORMATION
  Report Type: 
  Country: None (occurrence: None)
  Receive Date: 20111219
  Receipt Date: 20110613
  Transmission Date: 20120403
  Serious: No
  Sender: FDA-Public Use
  Company Number: US-ASTRAZENECA-2011SE22974

PATIENT
  Age: 77 Year
  Sex: Male
  Weight: 79.4 kg

DRUGS (4)
  1. CRESTOR [Suspect]
     Route: 048
     Dates: start: 20100701
  2. ASPIRIN [Concomitant]
  3. PLAVIX [Concomitant]
  4. SYNTHROID [Concomitant]

REACTIONS (2)
  - PAIN IN EXTREMITY [None]
  - RHINORRHOEA [None]
